FAERS Safety Report 7388401-3 (Version None)
Quarter: 2011Q1

REPORT INFORMATION
  Report Type: 
  Country: None (occurrence: None)
  Receive Date: 20110329
  Receipt Date: 20110329
  Transmission Date: 20110831
  Serious: Yes (Life-Threatening)
  Sender: FDA-Public Use
  Company Number: None

PATIENT
  Age: 78 Year
  Sex: Male
  Weight: 72.5755 kg

DRUGS (2)
  1. SINEMET [Suspect]
     Indication: PARKINSONISM
     Dosage: 25/100 3X 1 DAY ORAL
     Route: 048
     Dates: start: 20110213, end: 20110214
  2. SINEMET [Suspect]
     Dates: start: 20110216, end: 20110216

REACTIONS (1)
  - HYPOTHERMIA [None]
